FAERS Safety Report 5705016-0 (Version None)
Quarter: 2008Q2

REPORT INFORMATION
  Report Type: 
  Country: None (occurrence: None)
  Receive Date: 20080414
  Receipt Date: 20080331
  Transmission Date: 20081010
  Serious: Yes (Other)
  Sender: FDA-Public Use
  Company Number: JP-SANOFI-SYNTHELABO-A01200801539

PATIENT
  Sex: Female

DRUGS (9)
  1. ALLELOCK [Concomitant]
     Indication: DRUG USE FOR UNKNOWN INDICATION
     Route: 048
  2. ATARAX [Concomitant]
     Indication: DRUG USE FOR UNKNOWN INDICATION
     Route: 048
     Dates: start: 20070313
  3. POLARAMINE [Concomitant]
     Indication: DRUG USE FOR UNKNOWN INDICATION
     Route: 048
     Dates: end: 20080226
  4. ALLEGRA [Concomitant]
     Indication: DRUG ERUPTION
     Route: 048
     Dates: start: 20070313, end: 20080226
  5. TOKI-INSHI [Concomitant]
     Indication: DRUG USE FOR UNKNOWN INDICATION
     Route: 048
     Dates: start: 20060101, end: 20080204
  6. MYSLEE [Suspect]
     Indication: INSOMNIA
     Route: 048
     Dates: start: 20070313, end: 20080101
  7. MYSLEE [Suspect]
     Route: 048
     Dates: start: 20080101, end: 20080205
  8. ZANTAC [Concomitant]
     Indication: DRUG USE FOR UNKNOWN INDICATION
     Route: 048
     Dates: start: 20060101, end: 20080204
  9. TRANSAMIN [Concomitant]
     Indication: DRUG USE FOR UNKNOWN INDICATION
     Route: 048
     Dates: start: 20060101, end: 20080204

REACTIONS (1)
  - ERYTHEMA MULTIFORME [None]
